FAERS Safety Report 7654387-7 (Version None)
Quarter: 2011Q3

REPORT INFORMATION
  Report Type: 
  Country: None (occurrence: None)
  Receive Date: 20110803
  Receipt Date: 20110801
  Transmission Date: 20111222
  Serious: Yes (Other)
  Sender: FDA-Public Use
  Company Number: CZ-PFIZER INC-2011104129

PATIENT
  Sex: Male

DRUGS (9)
  1. MILURIT [Concomitant]
  2. MIRTAZAPINE [Concomitant]
  3. PERINDOPRIL [Concomitant]
  4. LORADUR [Concomitant]
  5. SECTRAL [Concomitant]
  6. SUTENT [Suspect]
     Indication: METASTATIC RENAL CELL CARCINOMA
     Dosage: 50 MG, UNK
     Dates: start: 20110401, end: 20110610
  7. DURAGESIC-100 [Concomitant]
  8. IBUPROFEN [Concomitant]
  9. BONDRONAT ^BOEHRINGER MANNHEIM^ [Concomitant]

REACTIONS (2)
  - PALMAR-PLANTAR ERYTHRODYSAESTHESIA SYNDROME [None]
  - DRUG INTOLERANCE [None]
